FAERS Safety Report 23809000 (Version 2)
Quarter: 2024Q2

REPORT INFORMATION
  Report Type: Report from Study
  Country: ES (occurrence: ES)
  Receive Date: 20240502
  Receipt Date: 20240524
  Transmission Date: 20240716
  Serious: Yes (Death, Hospitalization)
  Sender: FDA-Public Use
  Company Number: ES-TEVA-VS-3190312

PATIENT
  Age: 50 Year
  Sex: Male

DRUGS (6)
  1. VORICONAZOLE [Suspect]
     Active Substance: VORICONAZOLE
     Indication: Fungal skin infection
     Route: 042
  2. PEMBROLIZUMAB [Suspect]
     Active Substance: PEMBROLIZUMAB
     Indication: Immunosuppressant drug therapy
     Route: 065
  3. CARBOPLATIN [Suspect]
     Active Substance: CARBOPLATIN
     Indication: Immunosuppressant drug therapy
     Route: 065
  4. HYDROCORTISONE [Suspect]
     Active Substance: HYDROCORTISONE
     Indication: Immunosuppressant drug therapy
     Route: 065
  5. PEMETREXED [Suspect]
     Active Substance: PEMETREXED
     Indication: Immunosuppressant drug therapy
     Route: 065
  6. ANIDULAFUNGIN [Suspect]
     Active Substance: ANIDULAFUNGIN
     Indication: Fungal skin infection
     Route: 065

REACTIONS (2)
  - Fungal skin infection [Fatal]
  - Drug ineffective [Fatal]
